FAERS Safety Report 4592438-7 (Version None)
Quarter: 2005Q1

REPORT INFORMATION
  Report Type: 
  Country: None (occurrence: None)
  Receive Date: 20050228
  Receipt Date: 20050127
  Transmission Date: 20050727
  Serious: No
  Sender: FDA-Public Use
  Company Number: US-BRISTOL-MYERS SQUIBB COMPANY-12841136

PATIENT
  Age: 16 Year
  Sex: Male

DRUGS (3)
  1. ABILIFY [Suspect]
     Indication: PSYCHOTIC DISORDER
     Route: 048
  2. ABILIFY [Suspect]
     Indication: AFFECTIVE DISORDER
     Route: 048
  3. WELLBUTRIN XL [Concomitant]

REACTIONS (1)
  - HEPATIC ENZYME INCREASED [None]
